FAERS Safety Report 18905055 (Version 16)
Quarter: 2022Q1

REPORT INFORMATION
  Report Type: Report from Study
  Country: KR (occurrence: None)
  Receive Date: 20210217
  Receipt Date: 20220217
  Transmission Date: 20220423
  Serious: Yes (Hospitalization)
  Sender: FDA-Public Use
  Company Number: KR-EISAI MEDICAL RESEARCH-EC-2021-088108

PATIENT
  Age: 82 Year
  Sex: Male
  Weight: 55.7 kg

DRUGS (26)
  1. LENVATINIB [Suspect]
     Active Substance: LENVATINIB
     Indication: Hepatocellular carcinoma
     Route: 048
     Dates: start: 20200730, end: 20201229
  2. LENVATINIB [Suspect]
     Active Substance: LENVATINIB
     Route: 048
     Dates: start: 20210122, end: 20210209
  3. PEMBROLIZUMAB [Suspect]
     Active Substance: PEMBROLIZUMAB
     Indication: Hepatocellular carcinoma
     Route: 041
     Dates: start: 20200730, end: 20201209
  4. PEMBROLIZUMAB [Suspect]
     Active Substance: PEMBROLIZUMAB
     Route: 041
     Dates: start: 20210122, end: 20210122
  5. LAMISIL [Concomitant]
     Active Substance: TERBINAFINE HYDROCHLORIDE
     Dates: start: 202005, end: 20210210
  6. NEUOXITAM [Concomitant]
     Dates: start: 20200820, end: 20210210
  7. FERROUS SULFATE [Concomitant]
     Active Substance: FERROUS SULFATE
     Dates: start: 20200820
  8. SYNTHROID [Concomitant]
     Active Substance: LEVOTHYROXINE SODIUM
     Dates: start: 20201020, end: 20210303
  9. ATACAND [Concomitant]
     Active Substance: CANDESARTAN CILEXETIL
     Dates: start: 20201022, end: 20210210
  10. JANUMET [Concomitant]
     Active Substance: METFORMIN HYDROCHLORIDE\SITAGLIPTIN PHOSPHATE
     Dates: start: 20201031, end: 20210210
  11. URO-VAXOM [Concomitant]
     Dates: start: 20201103, end: 20210210
  12. THRUPASS ODT [Concomitant]
     Dates: start: 20201103, end: 20210210
  13. TWOLION [Concomitant]
     Dates: start: 20201113, end: 20210210
  14. NAZACARE [Concomitant]
     Dates: start: 20201113, end: 20210210
  15. LIPILOU [Concomitant]
     Dates: start: 20201117, end: 20210210
  16. NEXIUM [Concomitant]
     Active Substance: ESOMEPRAZOLE MAGNESIUM
     Dates: start: 20201209, end: 20210210
  17. DESOWEN [Concomitant]
     Active Substance: DESONIDE
     Route: 061
     Dates: start: 20201218, end: 20210330
  18. LEXAPRO [Concomitant]
     Active Substance: ESCITALOPRAM OXALATE
     Dates: start: 20210104, end: 20210210
  19. ATIVAN [Concomitant]
     Active Substance: LORAZEPAM
     Dates: start: 20210104, end: 20210210
  20. TIANEPTINE [Concomitant]
     Active Substance: TIANEPTINE
     Dates: start: 20210125, end: 20210210
  21. ARICEPT [Concomitant]
     Active Substance: DONEPEZIL HYDROCHLORIDE
     Route: 048
     Dates: start: 20210125, end: 20210210
  22. CHOLINE ALFOSCERATE [Concomitant]
     Active Substance: CHOLINE ALFOSCERATE
     Route: 048
     Dates: start: 20210125, end: 20210210
  23. BEPOSTAR [Concomitant]
     Route: 048
     Dates: start: 20210205, end: 20210210
  24. MEGACE [Concomitant]
     Active Substance: MEGESTROL ACETATE
     Route: 048
     Dates: start: 20210205, end: 20210210
  25. MIRABEGRON [Concomitant]
     Active Substance: MIRABEGRON
     Dates: start: 20201103, end: 20210210
  26. DYLASTINE [Concomitant]
     Dates: start: 20210205

REACTIONS (1)
  - Pneumonitis [Recovered/Resolved]

NARRATIVE: CASE EVENT DATE: 20210208
